FAERS Safety Report 9159947 (Version 4)
Quarter: 2013Q2

REPORT INFORMATION
  Report Type: Report from Study
  Country: DE (occurrence: DE)
  Receive Date: 20130313
  Receipt Date: 20130529
  Transmission Date: 20140414
  Serious: Yes (Death, Hospitalization)
  Sender: FDA-Public Use
  Company Number: DE-BAYER-2013-029423

PATIENT
  Age: 60 Year
  Sex: Male
  Weight: 87 kg

DRUGS (11)
  1. REGORAFENIB [Suspect]
     Indication: COLORECTAL CANCER
     Dosage: 160 MG
     Route: 048
     Dates: start: 20130301, end: 20130301
  2. LYRICA [Concomitant]
     Indication: PAIN
     Dosage: TOTAL DAILY DOSE 100 MG
     Route: 048
     Dates: end: 20130326
  3. LYRICA [Concomitant]
     Indication: COLORECTAL CANCER METASTATIC
  4. PANTOPRAZOLE [Concomitant]
     Indication: COLORECTAL CANCER METASTATIC
     Dosage: TOTAL DAILY DOSE 40 MG
     Route: 048
     Dates: end: 20130326
  5. HYDROMORPHONE [Concomitant]
     Indication: PAIN
     Dosage: TOTAL DAILY DOSE 12 MG
     Route: 048
     Dates: end: 20130326
  6. HYDROMORPHONE [Concomitant]
     Indication: COLORECTAL CANCER METASTATIC
  7. METFORMIN [Concomitant]
     Indication: TYPE 2 DIABETES MELLITUS
     Dosage: TOTAL DAILY DOSE 850 MG
     Route: 048
     Dates: end: 20130326
  8. APROVEL [Concomitant]
     Indication: COLORECTAL CANCER METASTATIC
     Dosage: TOTAL DAILY BDOSE 300 MG
     Route: 048
     Dates: end: 20130326
  9. PREDNISOLONE [PREDNISOLONE] [Concomitant]
     Indication: COLORECTAL CANCER METASTATIC
     Dosage: TOTAL DAILY DOSE 20 MG
     Route: 048
     Dates: end: 20130326
  10. PALLADON [Concomitant]
     Indication: COLORECTAL CANCER METASTATIC
     Dosage: TOTAL DAILY DOSE 2.6 MG
     Route: 048
     Dates: end: 20130326
  11. MCP [Concomitant]
     Indication: COLORECTAL CANCER METASTATIC
     Dosage: TOTAL DAILY DOSE 4 MG
     Route: 048
     Dates: end: 20130326

REACTIONS (2)
  - Constipation [Fatal]
  - Nausea [Fatal]
